FAERS Safety Report 21438551 (Version 2)
Quarter: 2022Q4

REPORT INFORMATION
  Report Type: Spontaneous
  Country: PL (occurrence: PL)
  Receive Date: 20221011
  Receipt Date: 20221018
  Transmission Date: 20230113
  Serious: Yes (Death, Life-Threatening, Other)
  Sender: FDA-Public Use
  Company Number: PL-MYLANLABS-2022M1095970

PATIENT
  Age: 70 Year
  Sex: Male

DRUGS (10)
  1. LEVETIRACETAM [Suspect]
     Active Substance: LEVETIRACETAM
     Indication: Status epilepticus
     Dosage: 60 MILLIGRAM/KILOGRAM
     Route: 065
  2. LEVETIRACETAM [Suspect]
     Active Substance: LEVETIRACETAM
     Indication: Partial seizures
  3. ATROPINE [Suspect]
     Active Substance: ATROPINE
     Indication: Cardiac arrest
     Dosage: UNK
     Route: 065
  4. ATROPINE [Suspect]
     Active Substance: ATROPINE
     Indication: Resuscitation
  5. DIAZEPAM [Suspect]
     Active Substance: DIAZEPAM
     Indication: Generalised tonic-clonic seizure
     Dosage: 20 MILLIGRAM
     Route: 042
  6. EPINEPHRINE [Suspect]
     Active Substance: EPINEPHRINE
     Indication: Resuscitation
     Dosage: UNK
     Route: 065
  7. EPINEPHRINE [Suspect]
     Active Substance: EPINEPHRINE
     Indication: Cardiac arrest
  8. PHENYTOIN [Suspect]
     Active Substance: PHENYTOIN
     Indication: Status epilepticus
     Dosage: 15 MILLIGRAM/KILOGRAM
     Route: 065
  9. PHENYTOIN [Suspect]
     Active Substance: PHENYTOIN
     Indication: Partial seizures
  10. VALPROATE SODIUM [Suspect]
     Active Substance: VALPROATE SODIUM
     Indication: Generalised tonic-clonic seizure
     Dosage: 40 MILLIGRAM/KILOGRAM
     Route: 042

REACTIONS (6)
  - Death [Fatal]
  - Drug ineffective [Unknown]
  - Condition aggravated [Unknown]
  - Multiple organ dysfunction syndrome [Unknown]
  - Partial seizures [Unknown]
  - Status epilepticus [Unknown]
